FAERS Safety Report 11094527 (Version 3)
Quarter: 2016Q4

REPORT INFORMATION
  Report Type: Spontaneous
  Country: US (occurrence: US)
  Receive Date: 20150506
  Receipt Date: 20161104
  Transmission Date: 20170206
  Serious: No
  Sender: FDA-Public Use
  Company Number: US-ANACOR-2015ANA00009

PATIENT
  Age: 76 Year
  Sex: Female
  Weight: 57.6 kg

DRUGS (6)
  1. METOPROLOL. [Concomitant]
     Active Substance: METOPROLOL
  2. KERYDIN [Suspect]
     Active Substance: TAVABOROLE
     Dosage: UNK
     Dates: start: 201412
  3. VALSARTAN. [Concomitant]
     Active Substance: VALSARTAN
  4. KERYDIN [Suspect]
     Active Substance: TAVABOROLE
     Indication: ONYCHOMYCOSIS
     Dosage: 1 DOSAGE UNITS, 1X/DAY
     Route: 061
     Dates: start: 201412, end: 201502
  5. KERYDIN [Suspect]
     Active Substance: TAVABOROLE
     Dosage: 1 GTT, 1X/DAY
     Route: 061
     Dates: start: 201502, end: 201502
  6. LEVOXYL [Concomitant]
     Active Substance: LEVOTHYROXINE SODIUM

REACTIONS (11)
  - Pain in extremity [Not Recovered/Not Resolved]
  - Wound [Not Recovered/Not Resolved]
  - Blister [Not Recovered/Not Resolved]
  - Onycholysis [Not Recovered/Not Resolved]
  - Application site erythema [Not Recovered/Not Resolved]
  - Pyrexia [Recovering/Resolving]
  - Localised infection [Recovering/Resolving]
  - Purulent discharge [Not Recovered/Not Resolved]
  - Application site warmth [Recovering/Resolving]
  - Mobility decreased [Recovering/Resolving]
  - Peripheral swelling [Not Recovered/Not Resolved]

NARRATIVE: CASE EVENT DATE: 2015
